FAERS Safety Report 4871214-1 (Version None)
Quarter: 2006Q1

REPORT INFORMATION
  Report Type: 
  Country: None (occurrence: None)
  Receive Date: 20060103
  Receipt Date: 20051226
  Transmission Date: 20060701
  Serious: Yes (Hospitalization)
  Sender: FDA-Public Use
  Company Number: JP-ABBOTT-05P-087-0320800-00

PATIENT
  Sex: Female

DRUGS (10)
  1. AKINETON [Suspect]
     Indication: PARKINSONISM
     Route: 048
     Dates: start: 20030930, end: 20051022
  2. PROMETHAZINE HCL [Suspect]
     Indication: PARKINSONISM
     Route: 048
     Dates: start: 20031014, end: 20051022
  3. LULLAN [Suspect]
     Indication: DELUSIONAL DISORDER, UNSPECIFIED TYPE
     Route: 048
     Dates: start: 20051011, end: 20051022
  4. LULLAN [Suspect]
     Route: 048
     Dates: start: 20030807, end: 20040505
  5. LULLAN [Suspect]
     Route: 048
     Dates: start: 20040506, end: 20051010
  6. SILESE [Concomitant]
     Indication: INSOMNIA
     Route: 048
     Dates: start: 20050802
  7. MAGMITT [Concomitant]
     Indication: CONSTIPATION
     Route: 048
     Dates: start: 20030812
  8. QUAZEPAM [Concomitant]
     Indication: INSOMNIA
     Route: 048
     Dates: start: 20050126, end: 20051022
  9. NITRAZEPAM [Concomitant]
     Indication: INSOMNIA
     Route: 048
     Dates: start: 20050524, end: 20051022
  10. LORAZEPAM [Concomitant]
     Indication: ANXIETY
     Route: 048
     Dates: start: 20050820

REACTIONS (3)
  - ANXIETY [None]
  - NEUROLEPTIC MALIGNANT SYNDROME [None]
  - PNEUMONIA ASPIRATION [None]
